FAERS Safety Report 8156309-1 (Version None)
Quarter: 2012Q1

REPORT INFORMATION
  Report Type: 
  Country: None (occurrence: None)
  Receive Date: 20120222
  Receipt Date: 20110505
  Transmission Date: 20120608
  Serious: Yes (Other)
  Sender: FDA-Public Use
  Company Number: US-BRISTOL-MYERS SQUIBB COMPANY-15721954

PATIENT
  Age: 56 Year
  Sex: Female
  Weight: 66 kg

DRUGS (9)
  1. VICODIN [Concomitant]
     Dosage: 1DF: 5/500MG
  2. ATENOLOL [Concomitant]
  3. GABAPENTIN [Concomitant]
     Indication: NEUROPATHY PERIPHERAL
  4. LOSARTAN POTASSIUM [Concomitant]
  5. LIDODERM [Concomitant]
  6. IMITREX [Concomitant]
  7. KENALOG [Suspect]
     Route: 008
     Dates: start: 20110101
  8. SIMVASTATIN [Concomitant]
  9. AMBIEN [Concomitant]

REACTIONS (1)
  - ANAPHYLACTIC REACTION [None]
